FAERS Safety Report 9983816 (Version 1)
Quarter: 2014Q1

REPORT INFORMATION
  Report Type: Spontaneous
  Country: CH (occurrence: CH)
  Receive Date: 20140307
  Receipt Date: 20140307
  Transmission Date: 20141002
  Serious: Yes (Other)
  Sender: FDA-Public Use
  Company Number: CH-GLAXOSMITHKLINE-B0974807A

PATIENT
  Age: 32 Year
  Sex: Female

DRUGS (12)
  1. SERETIDE [Suspect]
     Indication: PRODUCT USED FOR UNKNOWN INDICATION
     Route: 065
  2. AXOTIDE [Suspect]
     Indication: PRODUCT USED FOR UNKNOWN INDICATION
     Dosage: 250MCG TWICE PER DAY
     Route: 065
     Dates: start: 201311
  3. MIFEPRISTONE [Suspect]
     Indication: ABORTION
     Route: 065
     Dates: start: 20131115, end: 20131115
  4. CYTOTEC [Suspect]
     Indication: ABORTION
     Route: 065
     Dates: start: 20131115, end: 20131115
  5. FLUOXETINE [Suspect]
     Indication: PRODUCT USED FOR UNKNOWN INDICATION
     Dosage: 40MG PER DAY
     Route: 065
     Dates: start: 2013
  6. BRUFEN [Suspect]
     Indication: PRODUCT USED FOR UNKNOWN INDICATION
     Dosage: 400MG TWICE PER DAY
     Route: 065
     Dates: start: 201311, end: 201311
  7. MOTILIUM [Suspect]
     Indication: PRODUCT USED FOR UNKNOWN INDICATION
     Dosage: 10MG FOUR TIMES PER DAY
     Route: 065
     Dates: start: 201311, end: 201311
  8. SOLMUCALM [Suspect]
     Indication: PRODUCT USED FOR UNKNOWN INDICATION
     Dosage: 10ML THREE TIMES PER DAY
     Route: 065
     Dates: start: 201311, end: 201311
  9. DAFALGAN [Concomitant]
     Dosage: 1G THREE TIMES PER DAY
  10. TARDYFERON [Concomitant]
     Dosage: 80MG PER DAY
  11. ELEVIT PRONATAL [Concomitant]
  12. AUGMENTIN [Concomitant]
     Dosage: 625MG THREE TIMES PER DAY
     Dates: start: 201311, end: 201311

REACTIONS (2)
  - Exposure during pregnancy [Unknown]
  - Treatment failure [Not Recovered/Not Resolved]
